FAERS Safety Report 11331256 (Version 1)
Quarter: 2015Q3

REPORT INFORMATION
  Report Type: Spontaneous
  Country: US (occurrence: US)
  Receive Date: 20150803
  Receipt Date: 20150803
  Transmission Date: 20151125
  Serious: Yes (Other)
  Sender: FDA-Public Use
  Company Number: US-ELI_LILLY_AND_COMPANY-US201507008251

PATIENT
  Age: 55 Year
  Sex: Male

DRUGS (2)
  1. XELODA [Concomitant]
     Active Substance: CAPECITABINE
     Dosage: UNK, UNKNOWN
     Route: 065
  2. CYRAMZA [Suspect]
     Active Substance: RAMUCIRUMAB
     Indication: COLON CANCER
     Dosage: UNK, UNKNOWN
     Route: 065

REACTIONS (7)
  - Drug hypersensitivity [Unknown]
  - Fall [Unknown]
  - Photopsia [Unknown]
  - Swelling face [Unknown]
  - Blood pressure systolic decreased [Recovered/Resolved]
  - Urticaria [Unknown]
  - Anaphylactic reaction [Unknown]
